FAERS Safety Report 21191592 (Version 4)
Quarter: 2022Q4

REPORT INFORMATION
  Report Type: Report from Study
  Country: US (occurrence: US)
  Receive Date: 20220809
  Receipt Date: 20221122
  Transmission Date: 20230113
  Serious: Yes (Hospitalization, Other)
  Sender: FDA-Public Use
  Company Number: US-BRISTOL-MYERS SQUIBB COMPANY-2022-025785

PATIENT
  Age: 75 Year
  Sex: Male
  Weight: 94.34 kg

DRUGS (8)
  1. REVLIMID [Suspect]
     Active Substance: LENALIDOMIDE
     Indication: Plasma cell myeloma
     Dosage: REVLIMID 10 MG CAPSULE - 28/BTL/DAILY FOR 28 DAYS/10 MG DAILY FOR 28 DAYS ON A 28-DAY CYCLE??A3768A/
     Route: 048
  2. COMPLETE MULTIVITAMIN TAB [Concomitant]
     Indication: Product used for unknown indication
     Route: 065
  3. FISH OIL [Concomitant]
     Active Substance: FISH OIL
     Indication: Product used for unknown indication
     Dosage: CVS FISH OIL 1000 MG  SOFT GEL
     Route: 065
  4. COBAMAMIDE [Concomitant]
     Active Substance: COBAMAMIDE
     Indication: Product used for unknown indication
     Dosage: CVS VITAMIN B12  1000 MCG TAB
     Route: 065
  5. CALCIUM CARBONATE [Concomitant]
     Active Substance: CALCIUM CARBONATE
     Indication: Product used for unknown indication
     Route: 065
  6. THERA-M [Concomitant]
     Indication: Product used for unknown indication
     Route: 065
  7. FISH OIL\OMEGA-3 FATTY ACIDS [Concomitant]
     Active Substance: FISH OIL\OMEGA-3 FATTY ACIDS
     Indication: Product used for unknown indication
     Dosage: SOFT GEL
     Route: 065
  8. CALCIUM [Concomitant]
     Active Substance: CALCIUM
     Indication: Product used for unknown indication
     Dosage: 500(125)
     Route: 065

REACTIONS (10)
  - Seasonal allergy [Unknown]
  - Biliary obstruction [Unknown]
  - Root canal infection [Unknown]
  - Ophthalmic vein thrombosis [Unknown]
  - Blindness unilateral [Unknown]
  - Oral pain [Recovered/Resolved]
  - Fatigue [Unknown]
  - Muscle spasms [Unknown]
  - Arthralgia [Unknown]
  - Off label use [Unknown]

NARRATIVE: CASE EVENT DATE: 20211001
